FAERS Safety Report 9165023 (Version 1)
Quarter: 2013Q1

REPORT INFORMATION
  Report Type: Spontaneous
  Country: IT (occurrence: None)
  Receive Date: 20130228
  Receipt Date: 20130228
  Transmission Date: 20140127
  Serious: Yes (Hospitalization, Other)
  Sender: FDA-Public Use
  Company Number: AUR-APL-2013-01660

PATIENT
  Age: 45 Year
  Sex: Female

DRUGS (1)
  1. CITALOPRAM (CITALOPRAM) [Suspect]
     Indication: PRODUCT USED FOR UNKNOWN INDICATION
     Dates: start: 20130103, end: 20130103

REACTIONS (2)
  - Confusional state [None]
  - Drug abuse [None]
